FAERS Safety Report 9674566 (Version 3)
Quarter: 2013Q4

REPORT INFORMATION
  Report Type: Report from Study
  Country: BR (occurrence: BR)
  Receive Date: 20131107
  Receipt Date: 20131129
  Transmission Date: 20140711
  Serious: Yes (Hospitalization)
  Sender: FDA-Public Use
  Company Number: BR-ROCHE-765936

PATIENT
  Age: 72 Year
  Sex: Male
  Weight: 80 kg

DRUGS (11)
  1. MABTHERA [Suspect]
     Indication: RHEUMATOID ARTHRITIS
     Dosage: LATEST INFUSION WAS ADMINISTERED ON 02/JUL/2012 AND LATER ABOUT 8 MONTHS AGO.
     Route: 042
  2. TORLOS [Concomitant]
     Route: 065
  3. SIMVASTATIN [Concomitant]
     Route: 065
  4. RANITIDINE [Concomitant]
     Route: 065
  5. OS-CAL [Concomitant]
     Route: 065
  6. SOTALOL [Concomitant]
     Route: 065
  7. METFORMIN [Concomitant]
     Route: 065
  8. ALLOPURINOL [Concomitant]
     Route: 065
  9. METHOTREXATE [Concomitant]
     Route: 065
  10. FOLIC ACID [Concomitant]
     Route: 065
  11. UNSPECIFIED DRUG [Concomitant]
     Indication: PREMEDICATION

REACTIONS (4)
  - Urinary tract infection [Recovering/Resolving]
  - Aortic aneurysm [Recovered/Resolved]
  - Pulmonary oedema [Recovered/Resolved]
  - Blood pressure decreased [Recovered/Resolved]
